FAERS Safety Report 10480335 (Version 1)
Quarter: 2014Q3

REPORT INFORMATION
  Report Type: Spontaneous
  Country: US (occurrence: None)
  Receive Date: 20140925
  Receipt Date: 20140925
  Transmission Date: 20150326
  Serious: Yes (Disabling, Other)
  Sender: FDA-Public Use
  Company Number: 2014-20213

PATIENT
  Age: 85 Year
  Sex: Female

DRUGS (8)
  1. SYNTHROID [Concomitant]
     Active Substance: LEVOTHYROXINE SODIUM
  2. BENADRYL /00000402/ (DIPHENHYDRAMINE HYDROCHLORIDE) [Concomitant]
  3. TYLENOL /00020001/ (PARACETAMOL) [Concomitant]
  4. EVISTA [Concomitant]
     Active Substance: RALOXIFENE HYDROCHLORIDE
  5. BENICAR [Concomitant]
     Active Substance: OLMESARTAN MEDOXOMIL
  6. NIACIN (NICOTINIC ACID) [Concomitant]
  7. EYLEA [Suspect]
     Active Substance: AFLIBERCEPT
     Indication: AGE-RELATED MACULAR DEGENERATION
     Dosage: 0.5 CC, AS NECESSARY, INTRAOCULAR
     Route: 031
  8. VITAMIN D /00107901/ (ERGOCALCIFEROL) [Concomitant]

REACTIONS (2)
  - Endophthalmitis [None]
  - Blindness unilateral [None]

NARRATIVE: CASE EVENT DATE: 20140821
